FAERS Safety Report 21733034 (Version 1)
Quarter: 2022Q4

REPORT INFORMATION
  Report Type: Report from Study
  Country: US (occurrence: US)
  Receive Date: 20221215
  Receipt Date: 20221215
  Transmission Date: 20230112
  Serious: Yes (Hospitalization, Other)
  Sender: FDA-Public Use
  Company Number: US-ABBVIE-4236094

PATIENT
  Sex: Female

DRUGS (2)
  1. HUMIRA [Suspect]
     Active Substance: ADALIMUMAB
     Indication: Product used for unknown indication
     Route: 058
  2. HUMIRA [Suspect]
     Active Substance: ADALIMUMAB
     Route: 058

REACTIONS (7)
  - Thrombosis [Unknown]
  - Coma [Unknown]
  - Therapeutic response shortened [Unknown]
  - Post procedural haemorrhage [Unknown]
  - Hypoacusis [Unknown]
  - Muscle spasms [Unknown]
  - Product packaging quantity issue [Unknown]
